FAERS Safety Report 6593436-4 (Version None)
Quarter: 2010Q1

REPORT INFORMATION
  Report Type: 
  Country: None (occurrence: None)
  Receive Date: 20100222
  Receipt Date: 20090421
  Transmission Date: 20100710
  Serious: Yes (Hospitalization, Other)
  Sender: FDA-Public Use
  Company Number: US-BRISTOL-MYERS SQUIBB COMPANY-14597587

PATIENT
  Age: 64 Year
  Sex: Male
  Weight: 95 kg

DRUGS (9)
  1. ORENCIA [Suspect]
     Indication: RHEUMATOID ARTHRITIS
     Route: 042
     Dates: start: 20061001
  2. METOPROLOL TARTRATE [Concomitant]
  3. PROCARDIA [Concomitant]
  4. INSULIN [Concomitant]
  5. MOBIC [Concomitant]
  6. LOVASTATIN [Concomitant]
  7. LISINOPRIL [Concomitant]
  8. ZYRTEC [Concomitant]
  9. METHOTREXATE [Concomitant]

REACTIONS (3)
  - ARTHRALGIA [None]
  - CHEST DISCOMFORT [None]
  - PAIN IN EXTREMITY [None]
